FAERS Safety Report 5467594-9 (Version None)
Quarter: 2007Q3

REPORT INFORMATION
  Report Type: 
  Country: None (occurrence: None)
  Receive Date: 20070921
  Receipt Date: 20070914
  Transmission Date: 20080115
  Serious: Yes (Hospitalization)
  Sender: FDA-Public Use
  Company Number: 2007SP018686

PATIENT
  Age: 46 Year
  Sex: Female

DRUGS (2)
  1. PEG-INTRON [Suspect]
     Indication: HEPATITIS C
     Dosage: SC
     Route: 058
     Dates: start: 20070630, end: 20070801
  2. RIBAVIRIN [Suspect]
     Indication: HEPATITIS C
     Dosage: PO
     Route: 048
     Dates: start: 20070630

REACTIONS (5)
  - ASCITES [None]
  - GASTRIC DISORDER [None]
  - INFLUENZA LIKE ILLNESS [None]
  - OEDEMA PERIPHERAL [None]
  - PNEUMONIA [None]
